FAERS Safety Report 13335646 (Version 1)
Quarter: 2017Q1

REPORT INFORMATION
  Report Type: Spontaneous
  Country: JP (occurrence: JP)
  Receive Date: 20170314
  Receipt Date: 20170314
  Transmission Date: 20170428
  Serious: Yes (Other)
  Sender: FDA-Public Use
  Company Number: JP-MYLANLABS-2017M1015469

PATIENT

DRUGS (3)
  1. CILOSTAZOL. [Suspect]
     Active Substance: CILOSTAZOL
     Indication: PRODUCT USED FOR UNKNOWN INDICATION
     Dosage: 100MG DAILY; THE DOSE WAS FURTHER INCREASED TO 200MG
     Route: 048
  2. CILOSTAZOL. [Suspect]
     Active Substance: CILOSTAZOL
     Dosage: 200MG
     Route: 048
  3. DONEPEZIL. [Concomitant]
     Active Substance: DONEPEZIL
     Indication: DEMENTIA ALZHEIMER^S TYPE
     Dosage: 5MG DAILY
     Route: 065

REACTIONS (1)
  - Acute kidney injury [Recovered/Resolved]
